FAERS Safety Report 9390919 (Version 2)
Quarter: 2013Q3

REPORT INFORMATION
  Report Type: Spontaneous
  Country: US (occurrence: US)
  Receive Date: 20130709
  Receipt Date: 20130802
  Transmission Date: 20140515
  Serious: No
  Sender: FDA-Public Use
  Company Number: US-PFIZER INC-2013199300

PATIENT
  Sex: Female

DRUGS (1)
  1. SKELAXIN [Suspect]
     Dosage: 800 MG, 3X/DAY

REACTIONS (2)
  - Drug ineffective [Unknown]
  - Intentional drug misuse [Unknown]
